FAERS Safety Report 10278708 (Version 1)
Quarter: 2014Q3

REPORT INFORMATION
  Report Type: Spontaneous
  Country: GB (occurrence: GB)
  Receive Date: 20140705
  Receipt Date: 20140705
  Transmission Date: 20150326
  Serious: Yes (Other)
  Sender: FDA-Public Use
  Company Number: GB-ABBVIE-14K-167-1256233-00

PATIENT
  Age: 17 Year
  Sex: Male

DRUGS (2)
  1. LAMOTRIGINE. [Concomitant]
     Active Substance: LAMOTRIGINE
     Indication: PRODUCT USED FOR UNKNOWN INDICATION
  2. EPILIM [Suspect]
     Active Substance: VALPROATE SODIUM
     Indication: EPILEPSY
     Route: 048
     Dates: start: 1997

REACTIONS (6)
  - Drug dependence [Unknown]
  - Gait disturbance [Not Recovered/Not Resolved]
  - Joint dislocation [Unknown]
  - Convulsion [Unknown]
  - Drug withdrawal syndrome [Unknown]
  - Osteoporosis [Not Recovered/Not Resolved]
